FAERS Safety Report 5951977-4 (Version None)
Quarter: 2008Q4

REPORT INFORMATION
  Report Type: 
  Country: None (occurrence: None)
  Receive Date: 20081113
  Receipt Date: 20071015
  Transmission Date: 20090506
  Serious: No
  Sender: FDA-Public Use
  Company Number: A0687702A

PATIENT
  Age: 30 Year
  Sex: Male

DRUGS (4)
  1. COREG [Suspect]
     Dosage: 12.5MG TWICE PER DAY
     Route: 048
     Dates: start: 20070201
  2. LISINOPRIL [Concomitant]
  3. LASIX [Concomitant]
  4. POTASSIUM CHLORIDE [Concomitant]

REACTIONS (3)
  - FEELING DRUNK [None]
  - FOOD CRAVING [None]
  - WEIGHT INCREASED [None]
